FAERS Safety Report 7056094-0 (Version None)
Quarter: 2010Q4

REPORT INFORMATION
  Report Type: 
  Country: None (occurrence: None)
  Receive Date: 20101021
  Receipt Date: 20101019
  Transmission Date: 20110411
  Serious: Yes (Other)
  Sender: FDA-Public Use
  Company Number: US-SP-2010-06021

PATIENT
  Sex: Female

DRUGS (3)
  1. TUBERCULIN NOS [Suspect]
     Indication: TUBERCULIN TEST
     Route: 065
     Dates: start: 20101011, end: 20101011
  2. INFLUENZA VACCINE [Suspect]
     Indication: IMMUNISATION
     Route: 030
     Dates: start: 20101013, end: 20101013
  3. CA SUPPLEMENTS [Concomitant]
     Indication: SUPPLEMENTATION THERAPY

REACTIONS (3)
  - INFLUENZA [None]
  - MALAISE [None]
  - RESPIRATORY TRACT CONGESTION [None]
